FAERS Safety Report 5587003-9 (Version None)
Quarter: 2008Q1

REPORT INFORMATION
  Report Type: 
  Country: None (occurrence: None)
  Receive Date: 20080110
  Receipt Date: 20080107
  Transmission Date: 20080703
  Serious: Yes (Hospitalization)
  Sender: FDA-Public Use
  Company Number: A0701497A

PATIENT
  Sex: Male

DRUGS (2)
  1. ALKERAN [Suspect]
     Indication: MULTIPLE MYELOMA
     Dosage: 2MG PER DAY
     Route: 048
  2. PREDNISONE TAB [Concomitant]
     Dosage: 2TAB PER DAY
     Route: 048

REACTIONS (3)
  - BLOOD TEST ABNORMAL [None]
  - PLATELET COUNT DECREASED [None]
  - RED BLOOD CELL COUNT DECREASED [None]
